FAERS Safety Report 8094765-8 (Version None)
Quarter: 2012Q1

REPORT INFORMATION
  Report Type: 
  Country: None (occurrence: None)
  Receive Date: 20120129
  Receipt Date: 20111212
  Transmission Date: 20120608
  Serious: No
  Sender: FDA-Public Use
  Company Number: US-ABBOTT-11P-163-0882717-00

PATIENT
  Age: 33 Year
  Sex: Female

DRUGS (13)
  1. FOLIC ACID [Concomitant]
     Indication: VITAMIN SUPPLEMENTATION
  2. HUMIRA [Suspect]
     Indication: CROHN'S DISEASE
     Dates: start: 20111015
  3. ASCORBIC ACID [Concomitant]
     Indication: VITAMIN SUPPLEMENTATION
  4. SULFASALAZINE [Concomitant]
     Indication: CROHN'S DISEASE
  5. FISH OIL [Concomitant]
     Indication: MEDICAL DIET
  6. LIALDA [Concomitant]
     Indication: CROHN'S DISEASE
  7. LIALDA [Concomitant]
     Indication: COLITIS
  8. SULFASALAZINE [Concomitant]
     Indication: COLITIS
  9. MERCAPTOPURINE [Concomitant]
     Indication: COLITIS
  10. VITAMIN D [Concomitant]
     Indication: VITAMIN SUPPLEMENTATION
  11. PRILOSEC [Concomitant]
     Indication: CROHN'S DISEASE
  12. PRILOSEC [Concomitant]
     Indication: COLITIS
  13. MERCAPTOPURINE [Concomitant]
     Indication: CROHN'S DISEASE

REACTIONS (1)
  - MIGRAINE [None]
